FAERS Safety Report 17625781 (Version 1)
Quarter: 2020Q2

REPORT INFORMATION
  Report Type: Spontaneous
  Country: US (occurrence: US)
  Receive Date: 20200404
  Receipt Date: 20200404
  Transmission Date: 20200713
  Serious: No
  Sender: FDA-Public Use
  Company Number: US-TEVA-2020-US-1215970

PATIENT
  Sex: Male

DRUGS (4)
  1. METHYLPHENIDATE. [Suspect]
     Active Substance: METHYLPHENIDATE
     Dosage: 27 MILLIGRAM DAILY;
     Route: 065
  2. METHYLPHENIDATE. [Suspect]
     Active Substance: METHYLPHENIDATE
     Dosage: STARTED TAKING A 5 MG GENERIC METHYLPHENIDATE ^BOOSTER^ AUG/2019 ON DAYS THAT HE HAD HOMEWORK; CLARI
     Route: 065
     Dates: end: 202001
  3. METHYLPHENIDATE. [Suspect]
     Active Substance: METHYLPHENIDATE
     Route: 065
     Dates: start: 2020
  4. METHYLPHENIDATE. [Suspect]
     Active Substance: METHYLPHENIDATE
     Indication: ATTENTION DEFICIT HYPERACTIVITY DISORDER
     Dosage: 18 MILLIGRAM DAILY;
     Route: 065
     Dates: start: 201903

REACTIONS (1)
  - Therapeutic product effect incomplete [Unknown]
